FAERS Safety Report 5806722-X (Version None)
Quarter: 2008Q3

REPORT INFORMATION
  Report Type: 
  Country: None (occurrence: None)
  Receive Date: 20080709
  Receipt Date: 20080709
  Transmission Date: 20090109
  Serious: No
  Sender: FDA-Public Use
  Company Number: None

PATIENT
  Age: 47 Year
  Sex: Female
  Weight: 77.1115 kg

DRUGS (2)
  1. ENBREL [Suspect]
     Indication: ECZEMA
     Dosage: 50 MG Q WEEK SQ
     Route: 058
     Dates: start: 20050829, end: 20080514
  2. TOPICAL STEROIDS [Concomitant]

REACTIONS (1)
  - MYELITIS TRANSVERSE [None]
